FAERS Safety Report 10541779 (Version 1)
Quarter: 2014Q4

REPORT INFORMATION
  Report Type: Spontaneous
  Country: US (occurrence: US)
  Receive Date: 20141024
  Receipt Date: 20141024
  Transmission Date: 20150529
  Serious: Yes (Death, Disabling, Other)
  Sender: FDA-Public Use
  Company Number: GXBR2014US002253

PATIENT
  Sex: Female

DRUGS (4)
  1. MACROBID [Suspect]
     Active Substance: NITROFURANTOIN\NITROFURANTOIN MONOHYDRATE
     Indication: BLADDER DISORDER
     Dosage: UNK MG, UNK
     Route: 065
  2. NITROFURANTOIN CAPSULES USP [Suspect]
     Active Substance: NITROFURANTOIN
     Indication: BLADDER DISORDER
     Dosage: UNK MG, UNK
     Route: 065
  3. MACRODANTIN [Suspect]
     Active Substance: NITROFURANTOIN
     Indication: BLADDER DISORDER
     Dosage: UNK MG, UNK
     Route: 065
  4. SULFAMETHOXAZOLE TABLETS USP [Suspect]
     Active Substance: SULFAMETHOXAZOLE
     Indication: BLADDER DISORDER
     Dosage: UNK MG, UNK
     Route: 065

REACTIONS (9)
  - Death [Fatal]
  - Hepatic cirrhosis [Not Recovered/Not Resolved]
  - Renal injury [Not Recovered/Not Resolved]
  - Pain [Not Recovered/Not Resolved]
  - Condition aggravated [Not Recovered/Not Resolved]
  - Lung disorder [Not Recovered/Not Resolved]
  - Respiratory disorder [Not Recovered/Not Resolved]
  - Renal impairment [Not Recovered/Not Resolved]
  - Liver injury [Not Recovered/Not Resolved]
